FAERS Safety Report 9734725 (Version 1)
Quarter: 2013Q4

REPORT INFORMATION
  Report Type: Report from Study
  Country: DE (occurrence: DE)
  Receive Date: 20131206
  Receipt Date: 20131206
  Transmission Date: 20140711
  Serious: Yes (Other)
  Sender: FDA-Public Use
  Company Number: DE-BEH-2013039251

PATIENT
  Age: 70 Year
  Sex: Male
  Weight: 72 kg

DRUGS (4)
  1. PRIVIGEN [Suspect]
     Indication: HYPOGAMMAGLOBULINAEMIA
     Dosage: MIN./MAX. INFUSION RATE: 1.7 ML/MIN
     Route: 042
     Dates: start: 20121218, end: 20121218
  2. PRIVIGEN [Suspect]
     Dosage: MIN./MAX. INFUSION RATE: 1.7 ML/MIN
     Route: 042
     Dates: start: 20130115, end: 20130115
  3. PRIVIGEN [Suspect]
     Dosage: MIN./MAX. INFUSION RATE: 1.7 ML/MIN
     Route: 042
     Dates: start: 20130213, end: 20130213
  4. PRIVIGEN [Suspect]
     Dosage: MIN./MAX. INFUSION RATE: 1.7 ML/MIN
     Route: 042
     Dates: start: 20130319, end: 20130319

REACTIONS (2)
  - Skin infection [Recovered/Resolved]
  - Skin infection [Recovered/Resolved]
